FAERS Safety Report 14734473 (Version 1)
Quarter: 2018Q2

REPORT INFORMATION
  Report Type: Spontaneous
  Country: US (occurrence: US)
  Receive Date: 20180409
  Receipt Date: 20180409
  Transmission Date: 20180711
  Serious: Yes (Other)
  Sender: FDA-Public Use
  Company Number: US-LPDUSPRD-20180533

PATIENT

DRUGS (6)
  1. OXALIPLATIN INJECTION, USP (0517-1910-01) [Suspect]
     Active Substance: OXALIPLATIN
     Dosage: UNKNOWN
     Route: 065
  2. IRINOTECAN [Suspect]
     Active Substance: IRINOTECAN
     Dosage: UNKNOWN
     Route: 065
  3. LEUCOVORIN CALCIUM INJECTION (0517-8605-25) [Suspect]
     Active Substance: LEUCOVORIN CALCIUM
     Dosage: UNKNOWN
     Route: 065
  4. DEXAMETHASONE SODIUM PHOSPHATE INJECTION, USP (4901-25) [Suspect]
     Active Substance: DEXAMETHASONE SODIUM PHOSPHATE
     Dosage: UNKNOWN
     Route: 065
  5. ONDANSETRON INJECTION (4420-01) [Suspect]
     Active Substance: ONDANSETRON
     Dosage: UNKNOWN
     Route: 065
  6. 5-FLUOROURACIL [Suspect]
     Active Substance: FLUOROURACIL
     Dosage: UNKNOWN
     Route: 065

REACTIONS (1)
  - Immune thrombocytopenic purpura [Unknown]
